APPROVED DRUG PRODUCT: MIDAZOLAM IN 0.9% SODIUM CHLORIDE
Active Ingredient: MIDAZOLAM
Strength: 50MG/50ML (1MG/ML)
Dosage Form/Route: SOLUTION;INTRAVENOUS
Application: A218993 | Product #001 | TE Code: AP
Applicant: GLAND PHARMA LTD
Approved: Aug 12, 2024 | RLD: No | RS: No | Type: RX